FAERS Safety Report 7721985-1 (Version None)
Quarter: 2011Q3

REPORT INFORMATION
  Report Type: 
  Country: None (occurrence: None)
  Receive Date: 20110831
  Receipt Date: 20110830
  Transmission Date: 20111222
  Serious: Yes (Death)
  Sender: FDA-Public Use
  Company Number: JP-PFIZER INC-2011196816

PATIENT
  Age: 81 Year
  Sex: Female
  Weight: 47 kg

DRUGS (18)
  1. LASIX [Concomitant]
     Dosage: 20 MG, UNK
     Route: 048
     Dates: start: 20091106, end: 20100401
  2. ALLOPURINOL [Concomitant]
     Dosage: 200 MG, UNK
     Route: 048
     Dates: start: 20101001
  3. SUNITINIB MALATE [Suspect]
     Dosage: 37.5 MG, 1X/DAY
     Route: 048
     Dates: start: 20091106, end: 20100604
  4. NORVASC [Concomitant]
     Dosage: 1 DF, 1X/DAY
     Route: 048
     Dates: start: 20100226
  5. SUNITINIB MALATE [Suspect]
     Indication: GASTROINTESTINAL STROMAL TUMOUR
     Dosage: 50 MG, 1X/DAY
     Route: 048
     Dates: start: 20091023, end: 20091105
  6. ALDACTONE [Concomitant]
     Dosage: 75 MG, UNK
     Route: 048
     Dates: start: 20100326
  7. SUNITINIB MALATE [Suspect]
     Dosage: 25 MG, 1X/DAY
     Route: 048
     Dates: start: 20100618, end: 20100906
  8. SUNITINIB MALATE [Suspect]
     Dosage: 37.5 MG, 1X/DAY
     Route: 048
     Dates: start: 20100918, end: 20100928
  9. MAGNESIUM OXIDE [Concomitant]
     Indication: CONSTIPATION
     Dosage: 1 G, UNK
     Route: 048
  10. SELTOUCH [Concomitant]
     Indication: BACK PAIN
  11. LANSOPRAZOLE [Concomitant]
     Dosage: 15 MG, UNK
     Route: 048
     Dates: start: 20091106
  12. ALDACTONE [Concomitant]
     Dosage: 50 MG, UNK
     Route: 048
     Dates: start: 20091106, end: 20100325
  13. LASIX [Concomitant]
     Dosage: 40 MG, UNK
     Route: 048
     Dates: start: 20100402
  14. MARZULENE S [Concomitant]
     Dosage: 1.34 G, UNK
     Route: 048
  15. LOSARTAN POTASSIUM [Concomitant]
     Dosage: 25 MG, 1X/DAY
     Route: 048
     Dates: start: 20091225
  16. SUNITINIB MALATE [Suspect]
     Dosage: UNK
     Route: 048
     Dates: end: 20110301
  17. LEVOTHYROXINE SODIUM [Concomitant]
     Dosage: 50 UG, 1X/DAY
     Route: 048
     Dates: start: 20100730
  18. ALLOPURINOL [Concomitant]
     Dosage: 200 MG, UNK
     Route: 048
     Dates: start: 20100716, end: 20100813

REACTIONS (1)
  - DEATH [None]
